FAERS Safety Report 4354304-1 (Version None)
Quarter: 2004Q2

REPORT INFORMATION
  Report Type: 
  Country: None (occurrence: None)
  Receive Date: 20040503
  Receipt Date: 20040415
  Transmission Date: 20050107
  Serious: Yes (Hospitalization)
  Sender: FDA-Public Use
  Company Number: 196185

PATIENT
  Sex: Female

DRUGS (1)
  1. AVONEX [Suspect]
     Indication: MULTIPLE SCLEROSIS

REACTIONS (5)
  - BLADDER DISORDER [None]
  - COGNITIVE DISORDER [None]
  - DYSPHAGIA [None]
  - GASTROINTESTINAL DISORDER [None]
  - WHEELCHAIR USER [None]
